FAERS Safety Report 4288237-6 (Version None)
Quarter: 2004Q1

REPORT INFORMATION
  Report Type: 
  Country: None (occurrence: None)
  Receive Date: 20040209
  Receipt Date: 20030911
  Transmission Date: 20041129
  Serious: No
  Sender: FDA-Public Use
  Company Number: US-GLAXOSMITHKLINE-A0425419A

PATIENT
  Age: 84 Year
  Sex: Female

DRUGS (4)
  1. PAXIL [Suspect]
     Indication: NAUSEA
     Dosage: 20MG PER DAY
     Route: 048
     Dates: start: 20030817
  2. PEPCID [Concomitant]
  3. XANAX [Concomitant]
  4. LIPITOR [Concomitant]

REACTIONS (4)
  - BURNING SENSATION [None]
  - DIZZINESS [None]
  - GINGIVAL PAIN [None]
  - HYPOAESTHESIA ORAL [None]
